FAERS Safety Report 5971824-4 (Version None)
Quarter: 2008Q4

REPORT INFORMATION
  Report Type: 
  Country: None (occurrence: None)
  Receive Date: 20081110
  Receipt Date: 20081110
  Transmission Date: 20090506
  Serious: Yes (Hospitalization)
  Sender: FDA-Public Use
  Company Number: 2008AL011710

PATIENT
  Age: 45 Year
  Sex: Female

DRUGS (2)
  1. FEVERALL [Suspect]
  2. ASPIRIN [Concomitant]

REACTIONS (22)
  - ATRIAL FIBRILLATION [None]
  - BLOOD ALBUMIN DECREASED [None]
  - BLOOD CALCIUM DECREASED [None]
  - BLOOD GLUCOSE INCREASED [None]
  - BLOOD PHOSPHORUS INCREASED [None]
  - CONTINUOUS HAEMODIAFILTRATION [None]
  - GASTROINTESTINAL SOUNDS ABNORMAL [None]
  - GRAND MAL CONVULSION [None]
  - HAEMODIALYSIS [None]
  - HYPERHIDROSIS [None]
  - HYPERVENTILATION [None]
  - HYPOTENSION [None]
  - INTENTIONAL SELF-INJURY [None]
  - LACERATION [None]
  - MULTIPLE DRUG OVERDOSE INTENTIONAL [None]
  - MYOCARDIAL INFARCTION [None]
  - PH BODY FLUID DECREASED [None]
  - RESPIRATORY DEPRESSION [None]
  - SINUS TACHYCARDIA [None]
  - TACHYPNOEA [None]
  - TORSADE DE POINTES [None]
  - VENTRICULAR ARRHYTHMIA [None]
